FAERS Safety Report 13484057 (Version 1)
Quarter: 2017Q2

REPORT INFORMATION
  Report Type: Spontaneous
  Country: US (occurrence: US)
  Receive Date: 20170425
  Receipt Date: 20170425
  Transmission Date: 20170830
  Serious: Yes (Hospitalization, Other)
  Sender: FDA-Public Use
  Company Number: US-AUROBINDO-AUR-APL-2017-33125

PATIENT

DRUGS (1)
  1. DULOXETINE. [Suspect]
     Active Substance: DULOXETINE
     Indication: ANXIETY
     Dosage: 30 MG, DAILY
     Route: 065

REACTIONS (6)
  - Dysphagia [Recovered/Resolved]
  - Muscle rigidity [Recovered/Resolved]
  - Respiratory distress [Recovered/Resolved]
  - Nystagmus [Recovered/Resolved]
  - Muscle spasms [Recovered/Resolved]
  - Condition aggravated [Recovered/Resolved]
